FAERS Safety Report 4377203-8 (Version None)
Quarter: 2004Q2

REPORT INFORMATION
  Report Type: 
  Country: None (occurrence: None)
  Receive Date: 20040609
  Receipt Date: 20040223
  Transmission Date: 20050107
  Serious: No
  Sender: FDA-Public Use
  Company Number: 2004200883US

PATIENT
  Age: 78 Year
  Sex: Female

DRUGS (8)
  1. BEXTRA [Suspect]
     Indication: ARTHRITIS
     Dosage: 10 MG, QD, UNKNOWN
     Route: 065
     Dates: start: 20040220
  2. HYDROCODONE (HYDROCODONE) [Suspect]
     Dosage: UNKNOWN
     Route: 065
  3. COLCHICINE (COLCHICINE) [Suspect]
     Dosage: UNKNOWN
     Route: 065
  4. ZOCOR [Concomitant]
  5. WELCHOL [Concomitant]
  6. ATENOLOL [Concomitant]
  7. LOTENSIN [Concomitant]
  8. NORVASC [Concomitant]

REACTIONS (2)
  - HANGOVER [None]
  - VOMITING [None]
